FAERS Safety Report 5393537-2 (Version None)
Quarter: 2007Q3

REPORT INFORMATION
  Report Type: 
  Country: None (occurrence: None)
  Receive Date: 20070723
  Receipt Date: 20060821
  Transmission Date: 20080115
  Serious: No
  Sender: FDA-Public Use
  Company Number: A0615058A

PATIENT
  Age: 47 Year
  Sex: Male
  Weight: 204.5 kg

DRUGS (12)
  1. AVANDIA [Suspect]
     Dosage: 4MG TWICE PER DAY
     Route: 048
  2. HUMULIN R [Concomitant]
  3. METFORMIN HCL [Concomitant]
  4. COZAAR [Concomitant]
  5. METOPROLOL TARTRATE [Concomitant]
  6. HYDROCHLOROTHIAZIDE [Concomitant]
  7. FLONASE [Concomitant]
  8. LOPID [Concomitant]
  9. DARVOCET [Concomitant]
  10. ASPIRIN [Concomitant]
  11. LASIX [Concomitant]
  12. TYLENOL # 3 [Concomitant]

REACTIONS (1)
  - OEDEMA PERIPHERAL [None]
